FAERS Safety Report 14757863 (Version 3)
Quarter: 2020Q3

REPORT INFORMATION
  Report Type: Spontaneous
  Country: US (occurrence: US)
  Receive Date: 20180413
  Receipt Date: 20200715
  Transmission Date: 20201102
  Serious: Yes (Hospitalization, Other)
  Sender: FDA-Public Use
  Company Number: US-ASTRAZENECA-2018SE45271

PATIENT
  Age: 23427 Day
  Sex: Female
  Weight: 77.3 kg

DRUGS (27)
  1. LYRICA [Concomitant]
     Active Substance: PREGABALIN
  2. TOPIRAMATE. [Concomitant]
     Active Substance: TOPIRAMATE
  3. ONGLYZA [Suspect]
     Active Substance: SAXAGLIPTIN HYDROCHLORIDE
     Indication: DIABETES MELLITUS
     Route: 048
     Dates: start: 20150416, end: 20161101
  4. LORTAB [Concomitant]
     Active Substance: ACETAMINOPHEN\HYDROCODONE BITARTRATE
  5. HYDROCODONE [Concomitant]
     Active Substance: HYDROCODONE
  6. METFORMIN [Concomitant]
     Active Substance: METFORMIN HYDROCHLORIDE
  7. SUCRALFATE. [Concomitant]
     Active Substance: SUCRALFATE
  8. PROZAC [Concomitant]
     Active Substance: FLUOXETINE HYDROCHLORIDE
  9. NOVOLOG [Concomitant]
     Active Substance: INSULIN ASPART
  10. FLUOXETINE [Concomitant]
     Active Substance: FLUOXETINE HYDROCHLORIDE
  11. NORCO [Concomitant]
     Active Substance: ACETAMINOPHEN\HYDROCODONE BITARTRATE
  12. ONGLYZA [Suspect]
     Active Substance: SAXAGLIPTIN HYDROCHLORIDE
     Indication: DIABETES MELLITUS
     Route: 048
     Dates: start: 2016
  13. CRESTOR [Concomitant]
     Active Substance: ROSUVASTATIN CALCIUM
  14. GABAPENTIN. [Concomitant]
     Active Substance: GABAPENTIN
  15. PROPRANOLOL [Concomitant]
     Active Substance: PROPRANOLOL HYDROCHLORIDE
  16. SYMBICORT [Concomitant]
     Active Substance: BUDESONIDE\FORMOTEROL FUMARATE DIHYDRATE
  17. MORPHINE [Concomitant]
     Active Substance: MORPHINE
  18. PROVENTIL [Concomitant]
     Active Substance: ALBUTEROL
  19. XANAX [Concomitant]
     Active Substance: ALPRAZOLAM
  20. ASPIRIN. [Concomitant]
     Active Substance: ASPIRIN
  21. DOCUSATE?SENNA [Concomitant]
  22. KOMBIGLYZE XR [Suspect]
     Active Substance: METFORMIN HYDROCHLORIDE\SAXAGLIPTIN HYDROCHLORIDE
     Route: 048
     Dates: start: 2016
  23. CODEINE [Concomitant]
     Active Substance: CODEINE
  24. TRAMADOL. [Concomitant]
     Active Substance: TRAMADOL
  25. LISINOPRIL. [Concomitant]
     Active Substance: LISINOPRIL
  26. SPIRIVA [Concomitant]
     Active Substance: TIOTROPIUM BROMIDE MONOHYDRATE
  27. VITAMIN D3 [Concomitant]
     Active Substance: CHOLECALCIFEROL

REACTIONS (4)
  - Chronic left ventricular failure [Unknown]
  - Cardiac failure [Unknown]
  - Cardiovascular disorder [Unknown]
  - Cardiac failure congestive [Unknown]

NARRATIVE: CASE EVENT DATE: 20150706
